FAERS Safety Report 9596201 (Version 2)
Quarter: 2013Q4

REPORT INFORMATION
  Report Type: Spontaneous
  Country: US (occurrence: US)
  Receive Date: 20131004
  Receipt Date: 20131105
  Transmission Date: 20140711
  Serious: Yes (Other)
  Sender: FDA-Public Use
  Company Number: US-JNJFOC-20131000065

PATIENT
  Age: 66 Year
  Sex: Male
  Weight: 101.15 kg

DRUGS (8)
  1. INVOKANA [Suspect]
     Indication: TYPE 2 DIABETES MELLITUS
     Route: 048
     Dates: start: 20130911
  2. ANTIHYPERTENSIVE AGENT [Concomitant]
     Indication: HYPERTENSION
     Route: 048
  3. VIAGRA [Concomitant]
     Indication: ERECTILE DYSFUNCTION
  4. ALTACE [Concomitant]
     Indication: BLOOD PRESSURE
  5. CARTIA XT [Concomitant]
     Indication: BLOOD PRESSURE
  6. SIMVASTATIN [Concomitant]
     Indication: BLOOD CHOLESTEROL
  7. EPLERENONE [Concomitant]
  8. AMARYL [Concomitant]

REACTIONS (5)
  - Bradycardia [Recovered/Resolved]
  - Urine odour abnormal [Not Recovered/Not Resolved]
  - Chromaturia [Not Recovered/Not Resolved]
  - Orthostatic hypotension [Recovered/Resolved]
  - Weight decreased [Unknown]
